FAERS Safety Report 22329564 (Version 1)
Quarter: 2023Q2

REPORT INFORMATION
  Report Type: Spontaneous
  Country: FR (occurrence: FR)
  Receive Date: 20230517
  Receipt Date: 20230517
  Transmission Date: 20230722
  Serious: Yes (Other)
  Sender: FDA-Public Use
  Company Number: FR-AFSSAPS-PB2023000543

PATIENT
  Age: 17 Year
  Sex: Male

DRUGS (3)
  1. MIRTAZAPINE [Suspect]
     Active Substance: MIRTAZAPINE
     Indication: Product used for unknown indication
     Dosage: 90 MILLIGRAM (TOTAL)(6 CPX15)
     Route: 065
     Dates: start: 20230426
  2. OLANZAPINE [Suspect]
     Active Substance: OLANZAPINE
     Indication: Product used for unknown indication
     Dosage: 140 MILLIGRAM (TOTAL)(14 CP X 10 MG)
     Route: 065
     Dates: start: 20230426
  3. SERTRALINE [Suspect]
     Active Substance: SERTRALINE HYDROCHLORIDE
     Indication: Product used for unknown indication
     Dosage: 350 MILLIGRAM (TOTAL)(14 CP DE 25 MG)
     Route: 065
     Dates: start: 20230426

REACTIONS (3)
  - Sinus tachycardia [Unknown]
  - Somnolence [Recovered/Resolved]
  - Poisoning deliberate [Recovered/Resolved]

NARRATIVE: CASE EVENT DATE: 20230426
